FAERS Safety Report 9689057 (Version 2)
Quarter: 2013Q4

REPORT INFORMATION
  Report Type: Report from Study
  Country: US (occurrence: US)
  Receive Date: 20131114
  Receipt Date: 20131114
  Transmission Date: 20140711
  Serious: Yes (Hospitalization)
  Sender: FDA-Public Use
  Company Number: US-US-EMD SERONO, INC.-7238901

PATIENT
  Age: 41 Year
  Sex: Female

DRUGS (2)
  1. REBIF [Suspect]
     Indication: MULTIPLE SCLEROSIS
     Route: 058
     Dates: start: 20121114
  2. ALEVE                              /00256202/ [Concomitant]
     Indication: PREMEDICATION

REACTIONS (6)
  - Pancreatitis acute [Recovering/Resolving]
  - Urinary tract infection [Recovering/Resolving]
  - Multiple sclerosis relapse [Recovering/Resolving]
  - Back injury [Not Recovered/Not Resolved]
  - Excoriation [Not Recovered/Not Resolved]
  - Back pain [Not Recovered/Not Resolved]
